FAERS Safety Report 10667899 (Version 1)
Quarter: 2014Q4

REPORT INFORMATION
  Report Type: Spontaneous
  Country: US (occurrence: None)
  Receive Date: 20141219
  Receipt Date: 20141219
  Transmission Date: 20150529
  Serious: No
  Sender: FDA-Public Use
  Company Number: None

PATIENT
  Age: 58 Year
  Sex: Female
  Weight: 55.79 kg

DRUGS (2)
  1. OMEPRAZOLE DR 40 MG LEK PHARMACEUTICALS D.D. [Suspect]
     Active Substance: OMEPRAZOLE
     Indication: GASTROOESOPHAGEAL REFLUX DISEASE
     Dosage: 1; ONCE DAILY
     Route: 048
     Dates: start: 20141205, end: 20141211
  2. OMEPRAZOLE DR 40 MG LEK PHARMACEUTICALS D.D. [Suspect]
     Active Substance: OMEPRAZOLE
     Indication: COUGH
     Dosage: 1; ONCE DAILY
     Route: 048
     Dates: start: 20141205, end: 20141211

REACTIONS (1)
  - Pain in extremity [None]

NARRATIVE: CASE EVENT DATE: 20141209
